FAERS Safety Report 5995057-0 (Version None)
Quarter: 2008Q4

REPORT INFORMATION
  Report Type: 
  Country: None (occurrence: None)
  Receive Date: 20081212
  Receipt Date: 20080923
  Transmission Date: 20090506
  Serious: No
  Sender: FDA-Public Use
  Company Number: US-ABBOTT-08P-163-0477884-00

PATIENT
  Sex: Female
  Weight: 72.64 kg

DRUGS (8)
  1. HUMIRA [Suspect]
     Indication: RHEUMATOID ARTHRITIS
     Dates: start: 20080301, end: 20080826
  2. HYDROXYCHLOROQUINE SULFATE [Concomitant]
     Indication: ARTHRITIS
     Route: 048
  3. ARTHROTEC [Concomitant]
     Indication: ARTHRITIS
     Route: 048
     Dates: start: 20050101
  4. CADUET [Concomitant]
     Indication: ARTHRITIS
     Route: 048
     Dates: start: 20070101
  5. ACETAMINOPHEN [Concomitant]
     Indication: ARTHRITIS
     Dosage: 2 - 500MG PILLS THREE TIMES A DAY PRN
     Route: 048
  6. ATENOLOL [Concomitant]
     Indication: CARDIAC DISORDER
     Route: 048
     Dates: start: 20050101
  7. BUPROPION HCL [Concomitant]
     Indication: DEPRESSION
     Route: 048
     Dates: start: 20080101
  8. METANEX [Concomitant]
     Indication: VITAMIN SUPPLEMENTATION
     Route: 048
     Dates: start: 20040101

REACTIONS (1)
  - HERPES ZOSTER [None]
